FAERS Safety Report 8104411 (Version 10)
Quarter: 2013Q4

REPORT INFORMATION
  Report Type: Spontaneous
  Country: GB (occurrence: GB)
  Receive Date: 20110824
  Receipt Date: 20131231
  Transmission Date: 20140711
  Serious: Yes (Life-Threatening, Hospitalization, Disabling)
  Sender: FDA-Public Use
  Company Number: GB-GLAXOSMITHKLINE-B0740896A

PATIENT
  Age: 30 Year
  Sex: Female
  Weight: 63.5 kg

DRUGS (21)
  1. SEROXAT [Suspect]
     Indication: DEPRESSION
     Dosage: 20MG THREE TIMES PER DAY
     Route: 048
     Dates: start: 19990801, end: 201105
  2. SEROXAT [Suspect]
     Indication: DEPRESSION
     Dosage: 40MG PER DAY
     Route: 048
     Dates: start: 201105, end: 20110706
  3. PAROXETINE [Suspect]
     Indication: DEPRESSION
     Dosage: 40MG PER DAY
     Route: 048
     Dates: start: 19990801, end: 20110706
  4. PAROXETINE [Suspect]
     Indication: DEPRESSION
     Route: 048
  5. QUETIAPINE [Suspect]
     Indication: PSYCHOTIC DISORDER
     Route: 048
     Dates: start: 20110224, end: 20110506
  6. LORAZEPAM [Suspect]
     Indication: SEDATION
     Dosage: 1MG FOUR TIMES PER DAY
     Route: 048
     Dates: start: 20110523, end: 20110627
  7. CLONAZEPAM [Suspect]
     Indication: SEDATION
     Route: 048
     Dates: start: 20110224, end: 20110410
  8. PROCYCLIDINE [Suspect]
     Indication: EXTRAPYRAMIDAL DISORDER
     Dosage: 5MG PER DAY
     Route: 048
     Dates: start: 20110503, end: 20110510
  9. MIRTAZAPINE [Suspect]
     Indication: DEPRESSION
     Dosage: 30MG PER DAY
     Route: 048
     Dates: start: 20100923, end: 20101108
  10. TRAMADOL [Suspect]
     Indication: NECK PAIN
     Route: 048
     Dates: start: 20081201, end: 20101210
  11. DIAZEPAM [Suspect]
     Indication: MUSCLE SPASMS
     Dosage: 20MG PER DAY
     Route: 065
     Dates: start: 20110725
  12. AMITRIPTYLINE [Suspect]
     Indication: MUSCLE SPASMS
     Dosage: 25MG AT NIGHT
     Route: 065
     Dates: start: 20110810
  13. CODEINE [Suspect]
     Indication: ANALGESIC THERAPY
     Route: 048
     Dates: start: 20110615, end: 20110723
  14. DOMPERIDONE [Suspect]
     Indication: PRODUCT USED FOR UNKNOWN INDICATION
     Route: 065
  15. OMEPRAZOLE [Suspect]
     Indication: DYSPEPSIA
     Dosage: 20MG PER DAY
     Route: 065
     Dates: start: 20110525
  16. CODEINE [Suspect]
     Indication: ANALGESIC THERAPY
     Route: 048
     Dates: start: 2008, end: 2008
  17. CODEINE [Suspect]
     Indication: ANALGESIC THERAPY
     Route: 048
     Dates: start: 2002, end: 2002
  18. LORAZEPAM [Suspect]
     Indication: SEDATION
     Route: 048
     Dates: start: 20110224, end: 20110410
  19. TRAMADOL [Suspect]
     Indication: ANALGESIC THERAPY
     Route: 048
     Dates: start: 20080722
  20. PROCYCLIDINE [Suspect]
     Indication: OCULOGYRIC CRISIS
     Route: 048
     Dates: start: 1995, end: 1996
  21. DIAZEPAM [Suspect]
     Indication: MYALGIA
     Dosage: 8MG PER DAY
     Route: 048

REACTIONS (81)
  - Serotonin syndrome [Unknown]
  - Suicidal ideation [Not Recovered/Not Resolved]
  - Aphasia [Recovered/Resolved]
  - Paralysis [Unknown]
  - Hallucinations, mixed [Unknown]
  - Psychotic disorder [Recovered/Resolved]
  - Convulsion [Unknown]
  - Neuroleptic malignant syndrome [Unknown]
  - Mania [Unknown]
  - Premature labour [Unknown]
  - Delirium [Unknown]
  - Cyanosis [Unknown]
  - Toxicity to various agents [Unknown]
  - Schizophrenia [Unknown]
  - Skin discolouration [Not Recovered/Not Resolved]
  - Malaise [Unknown]
  - Feeling of despair [Unknown]
  - Disturbance in attention [Unknown]
  - Nightmare [Unknown]
  - Depression [Unknown]
  - Sleep disorder [Unknown]
  - Pyrexia [Unknown]
  - Tremor [Not Recovered/Not Resolved]
  - Vomiting [Unknown]
  - Dystonia [Unknown]
  - H1N1 influenza [Unknown]
  - Contusion [Unknown]
  - Menstrual disorder [Unknown]
  - Mood swings [Unknown]
  - Anxiety [Unknown]
  - Incontinence [Not Recovered/Not Resolved]
  - Drug withdrawal syndrome [Unknown]
  - Urinary retention [Unknown]
  - Paraesthesia [Unknown]
  - Dyskinesia [Unknown]
  - Headache [Unknown]
  - Derealisation [Not Recovered/Not Resolved]
  - Agitation [Unknown]
  - Parosmia [Unknown]
  - Sensory loss [Unknown]
  - Dizziness [Unknown]
  - Disorientation [Not Recovered/Not Resolved]
  - Balance disorder [Unknown]
  - Swelling face [Unknown]
  - Asthenia [Unknown]
  - Muscle disorder [Unknown]
  - Gait disturbance [Unknown]
  - Cogwheel rigidity [Unknown]
  - Drooling [Unknown]
  - Tachycardia [Unknown]
  - Eye pain [Unknown]
  - Arthralgia [Unknown]
  - Visual impairment [Unknown]
  - Mydriasis [Unknown]
  - Hypoaesthesia [Not Recovered/Not Resolved]
  - Diarrhoea [Unknown]
  - Restlessness [Unknown]
  - Dyspnoea [Unknown]
  - Dissociation [Not Recovered/Not Resolved]
  - Decreased appetite [Unknown]
  - Drug interaction [Unknown]
  - Exposure during pregnancy [Unknown]
  - Pallor [Unknown]
  - Muscle rigidity [Unknown]
  - Musculoskeletal stiffness [Unknown]
  - Hypoaesthesia oral [Unknown]
  - Gait disturbance [Unknown]
  - Confusional state [Unknown]
  - Depersonalisation [Unknown]
  - Tinnitus [Unknown]
  - Feeling of body temperature change [Unknown]
  - Swollen tongue [Unknown]
  - Muscle spasms [Unknown]
  - Blood sodium decreased [Unknown]
  - Vision blurred [Unknown]
  - Emotional disorder [Unknown]
  - Gastric pH decreased [Unknown]
  - Heart rate increased [Unknown]
  - Feeling jittery [Unknown]
  - Pruritus [Unknown]
  - Hyperhidrosis [Unknown]
